FAERS Safety Report 12577601 (Version 2)
Quarter: 2016Q3

REPORT INFORMATION
  Report Type: Spontaneous
  Country: CA (occurrence: CA)
  Receive Date: 20160720
  Receipt Date: 20160831
  Transmission Date: 20161109
  Serious: Yes (Other)
  Sender: FDA-Public Use
  Company Number: CA-ELI_LILLY_AND_COMPANY-CA201606009895

PATIENT
  Age: 66 Year
  Sex: Female

DRUGS (4)
  1. ASCORBIC ACID. [Concomitant]
     Active Substance: ASCORBIC ACID
     Dosage: UNK, UNKNOWN
     Route: 065
  2. COBALAMIN [Concomitant]
     Active Substance: COBALAMIN
     Dosage: UNK, UNKNOWN
     Route: 065
  3. MULTI VITAMIN [Concomitant]
     Active Substance: VITAMINS
     Dosage: UNK, UNKNOWN
     Route: 065
  4. CYMBALTA [Suspect]
     Active Substance: DULOXETINE HYDROCHLORIDE
     Indication: PAIN
     Dosage: 30 MG, UNKNOWN
     Route: 065
     Dates: start: 20160516

REACTIONS (6)
  - Nausea [Unknown]
  - Vomiting [Unknown]
  - Somnolence [Unknown]
  - Ultrasound abdomen abnormal [Unknown]
  - Gastrointestinal stromal tumour [Unknown]
  - Dysgeusia [Unknown]

NARRATIVE: CASE EVENT DATE: 20160518
